FAERS Safety Report 21897087 (Version 2)
Quarter: 2023Q1

REPORT INFORMATION
  Report Type: Report from Study
  Country: JP (occurrence: JP)
  Receive Date: 20230123
  Receipt Date: 20230220
  Transmission Date: 20230418
  Serious: Yes (Other)
  Sender: FDA-Public Use
  Company Number: JP-VIIV HEALTHCARE LIMITED-JP2020JPN010860

PATIENT

DRUGS (5)
  1. DOLUTEGRAVIR [Suspect]
     Active Substance: DOLUTEGRAVIR
     Indication: HIV infection
     Dosage: 50 MG, QD
     Route: 048
     Dates: start: 20181127
  2. ATOVAQUONE [Suspect]
     Active Substance: ATOVAQUONE
     Indication: Prophylaxis
     Dosage: UNK
     Route: 048
     Dates: start: 20181113, end: 20190531
  3. DIFLUCAN [Suspect]
     Active Substance: FLUCONAZOLE
     Dosage: UNK
     Route: 065
     Dates: start: 20181127, end: 20181221
  4. AZITHROMYCIN DIHYDRATE [Suspect]
     Active Substance: AZITHROMYCIN DIHYDRATE
     Indication: Prophylaxis
     Dosage: UNK
     Route: 065
     Dates: start: 20181113, end: 20190223
  5. DESCOVY [Suspect]
     Active Substance: EMTRICITABINE\TENOFOVIR ALAFENAMIDE FUMARATE
     Indication: HIV infection
     Dosage: 1 DF, 1D
     Route: 048
     Dates: start: 20181127

REACTIONS (6)
  - Seborrhoeic dermatitis [Recovering/Resolving]
  - Rash papular [Recovering/Resolving]
  - Urticaria [Recovering/Resolving]
  - Gamma-glutamyltransferase increased [Not Recovered/Not Resolved]
  - Blood triglycerides increased [Not Recovered/Not Resolved]
  - Syphilis [Recovering/Resolving]

NARRATIVE: CASE EVENT DATE: 20181130
